FAERS Safety Report 14546796 (Version 1)
Quarter: 2018Q1

REPORT INFORMATION
  Report Type: Spontaneous
  Country: DE (occurrence: DE)
  Receive Date: 20180219
  Receipt Date: 20180219
  Transmission Date: 20180509
  Serious: Yes (Death)
  Sender: FDA-Public Use
  Company Number: DE-BAXTER-2018BAX005119

PATIENT
  Sex: Male

DRUGS (7)
  1. MIMPARA [Concomitant]
     Active Substance: CINACALCET HYDROCHLORIDE
     Indication: HYPOPARATHYROIDISM SECONDARY
     Route: 048
  2. DEKRISTOL [Concomitant]
     Active Substance: CHOLECALCIFEROL
     Indication: CHRONIC KIDNEY DISEASE-MINERAL AND BONE DISORDER
     Route: 065
  3. EXTRANEAL [Suspect]
     Active Substance: CALCIUM CHLORIDE\ICODEXTRIN\MAGNESIUM CHLORIDE\SODIUM CHLORIDE\SODIUM LACTATE
     Indication: PERITONEAL DIALYSIS
     Route: 033
  4. NUTRINEAL PD4 [Suspect]
     Active Substance: AMINO ACIDS\CALCIUM CHLORIDE\MAGNESIUM CHLORIDE\SODIUM CHLORIDE\SODIUM LACTATE
     Indication: PERITONEAL DIALYSIS
     Route: 033
  5. CALCIUM ACETATE. [Concomitant]
     Active Substance: CALCIUM ACETATE
     Indication: HYPOPARATHYROIDISM SECONDARY
     Dosage: 3 X 2 PER ORAL
     Route: 048
  6. PHYSIONEAL 40 GLUCOSE 2,27 % W/V 22,7 MG/ML CLEARFLEX PERITONEALDIALYS [Suspect]
     Active Substance: CALCIUM\DEXTROSE\MAGNESIUM\SODIUM BICARBONATE\SODIUM CHLORIDE\SODIUM LACTATE
     Indication: PERITONEAL DIALYSIS
     Route: 033
  7. FRUBIASE CALCIUM 500 [Concomitant]
     Indication: HYPOCALCAEMIA
     Route: 048

REACTIONS (3)
  - Cardiac failure [Fatal]
  - Sepsis [Fatal]
  - Acute abdomen [Fatal]
